FAERS Safety Report 4974651-X (Version None)
Quarter: 2006Q2

REPORT INFORMATION
  Report Type: 
  Country: None (occurrence: None)
  Receive Date: 20060417
  Receipt Date: 20051207
  Transmission Date: 20061013
  Serious: Yes (Hospitalization)
  Sender: FDA-Public Use
  Company Number: US-MERCK-0512USA01276

PATIENT
  Age: 75 Year
  Sex: Male
  Weight: 125 kg

DRUGS (35)
  1. AMITRIPTYLINE HYDROCHLORIDE [Concomitant]
     Route: 065
  2. CENTRUM SILVER [Concomitant]
     Route: 065
  3. CLONIDINE [Concomitant]
     Route: 065
  4. ECOTRIN [Concomitant]
     Route: 065
  5. LASIX [Concomitant]
     Route: 065
  6. LANOXIN [Concomitant]
     Route: 065
  7. LOPID [Concomitant]
     Route: 065
  8. LORAZEPAM [Concomitant]
     Route: 065
  9. LOTREL [Concomitant]
     Route: 065
  10. NORVASC [Concomitant]
     Route: 065
  11. PRANDIN [Concomitant]
     Route: 065
  12. [THERAPY UNSPECIFIED] [Concomitant]
     Route: 065
  13. PRILOSEC [Concomitant]
     Route: 065
  14. ZOCOR [Concomitant]
     Route: 065
  15. LEVBID [Concomitant]
     Route: 065
  16. SULFAMETHOXAZOLE AND TRIMETHOPRIM [Concomitant]
     Route: 065
  17. ULTRAM [Concomitant]
     Route: 065
  18. PERCOCET [Concomitant]
     Route: 065
  19. PHENERGAN (PROMETHAZINE HYDROCHLORIDE) [Concomitant]
     Route: 065
  20. ATENOLOL [Concomitant]
     Route: 065
  21. GEMFIBROZIL [Concomitant]
     Route: 065
  22. ZITHROMAX [Concomitant]
     Route: 065
  23. AMARYL [Concomitant]
     Route: 065
  24. ACETAMINOPHEN AND PROPOXYPHENE NAPSYLATE [Concomitant]
     Route: 065
  25. AMOXICILLIN [Concomitant]
     Route: 065
  26. CEFTIN [Concomitant]
     Route: 065
  27. DILTIAZEM HCL [Concomitant]
     Route: 065
  28. TRIMOX [Concomitant]
     Route: 065
  29. CARDURA [Concomitant]
     Route: 065
  30. NEURONTIN [Concomitant]
     Route: 065
  31. CAPTOPRIL MSD [Concomitant]
     Route: 065
  32. CARBAMAZEPINE [Concomitant]
     Route: 065
  33. TRICOR [Concomitant]
     Route: 065
  34. BUSPAR [Concomitant]
     Route: 065
  35. VIOXX [Suspect]
     Route: 048
     Dates: start: 20000101, end: 20020301

REACTIONS (27)
  - ABDOMINAL PAIN [None]
  - ANGIOPLASTY [None]
  - AORTIC DILATATION [None]
  - ARTERIOSCLEROSIS CORONARY ARTERY [None]
  - ATRIAL FIBRILLATION [None]
  - AUTONOMIC NERVOUS SYSTEM IMBALANCE [None]
  - BLADDER NEOPLASM SURGERY [None]
  - CEREBROVASCULAR ACCIDENT [None]
  - CHOLECYSTITIS ACUTE [None]
  - COLONIC POLYP [None]
  - CORONARY ARTERY STENOSIS [None]
  - CORONARY ARTERY SURGERY [None]
  - DIARRHOEA [None]
  - EAR DISORDER [None]
  - ENCEPHALOMALACIA [None]
  - EPISTAXIS [None]
  - GASTRITIS [None]
  - LABILE HYPERTENSION [None]
  - MALIGNANT MELANOMA [None]
  - NEPHROLITHIASIS [None]
  - NEUROPATHY PERIPHERAL [None]
  - ORTHOSTATIC HYPOTENSION [None]
  - PANCREATITIS [None]
  - SPINAL DISORDER [None]
  - SPINAL OSTEOARTHRITIS [None]
  - THROMBOPHLEBITIS SUPERFICIAL [None]
  - TRANSIENT ISCHAEMIC ATTACK [None]
